FAERS Safety Report 7516956-4 (Version None)
Quarter: 2011Q2

REPORT INFORMATION
  Report Type: 
  Country: None (occurrence: None)
  Receive Date: 20110601
  Receipt Date: 20110517
  Transmission Date: 20111010
  Serious: Yes (Death, Congenital Anomaly)
  Sender: FDA-Public Use
  Company Number: GB-WATSON-2011-07442

PATIENT
  Sex: Male
  Weight: 1.12 kg

DRUGS (3)
  1. BECLOMETHASONE DIPROPIONATE [Suspect]
     Indication: PRODUCT USED FOR UNKNOWN INDICATION
     Dosage: UNKNOWN
     Route: 064
  2. ALBUTEROL SULFATE [Suspect]
     Indication: PRODUCT USED FOR UNKNOWN INDICATION
     Dosage: UNKNOWN
     Route: 064
  3. CANDESARTAN CILEXETIL [Suspect]
     Indication: PRODUCT USED FOR UNKNOWN INDICATION
     Dosage: UNKNOWN
     Route: 064

REACTIONS (8)
  - DRUG EXPOSURE DURING PREGNANCY [None]
  - NEONATAL HYPOTENSION [None]
  - HYPOSPADIAS [None]
  - ANURIA [None]
  - JOINT CONTRACTURE [None]
  - SINGLE FUNCTIONAL KIDNEY [None]
  - OLIGOHYDRAMNIOS [None]
  - SKULL MALFORMATION [None]
